FAERS Safety Report 11562778 (Version 1)
Quarter: 2015Q3

REPORT INFORMATION
  Report Type: Spontaneous
  Country: US (occurrence: US)
  Receive Date: 20150916
  Receipt Date: 20150916
  Transmission Date: 20151125
  Serious: No
  Sender: FDA-Public Use
  Company Number: US-ELI_LILLY_AND_COMPANY-US200812005295

PATIENT
  Sex: Female
  Weight: 68.03 kg

DRUGS (3)
  1. AVEENO BATH [Concomitant]
  2. FORTEO [Suspect]
     Active Substance: TERIPARATIDE
  3. FORTEO [Suspect]
     Active Substance: TERIPARATIDE
     Indication: OSTEOPOROSIS
     Dosage: UNK, EACH EVENING
     Dates: start: 20071206

REACTIONS (4)
  - Heart rate increased [Not Recovered/Not Resolved]
  - Polyuria [Not Recovered/Not Resolved]
  - Rash erythematous [Not Recovered/Not Resolved]
  - Sinus disorder [Not Recovered/Not Resolved]

NARRATIVE: CASE EVENT DATE: 2008
